FAERS Safety Report 9994921 (Version 1)
Quarter: 2014Q1

REPORT INFORMATION
  Report Type: Spontaneous
  Country: US (occurrence: None)
  Receive Date: 20140214
  Receipt Date: 20140214
  Transmission Date: 20141002
  Serious: Yes (Other)
  Sender: FDA-Public Use
  Company Number: 1000047936

PATIENT
  Age: 66 Year
  Sex: Male

DRUGS (2)
  1. BYSTOLIC [Suspect]
     Indication: HYPERTENSION
     Route: 048
     Dates: start: 201304, end: 201307
  2. HYZAAR (HYZAAR) [Concomitant]

REACTIONS (3)
  - Heart rate decreased [None]
  - Chest discomfort [None]
  - Dyspnoea [None]
